FAERS Safety Report 18011153 (Version 1)
Quarter: 2020Q3

REPORT INFORMATION
  Report Type: Report from Study
  Country: EG (occurrence: EG)
  Receive Date: 20200711
  Receipt Date: 20200711
  Transmission Date: 20201103
  Serious: Yes (Death, Hospitalization, Other)
  Sender: FDA-Public Use
  Company Number: NVSC2020EG194647

PATIENT
  Age: 64 Year
  Sex: Female

DRUGS (1)
  1. ENTRESTO [Suspect]
     Active Substance: SACUBITRIL\VALSARTAN
     Indication: CARDIAC FAILURE
     Dosage: 1 DF, BID
     Route: 065
     Dates: start: 201904

REACTIONS (4)
  - Death [Fatal]
  - Ejection fraction decreased [Unknown]
  - Dyspnoea [Unknown]
  - Haemophilia [Unknown]

NARRATIVE: CASE EVENT DATE: 202003
